FAERS Safety Report 10869335 (Version 1)
Quarter: 2015Q1

REPORT INFORMATION
  Report Type: Spontaneous
  Country: DE (occurrence: DE)
  Receive Date: 20150226
  Receipt Date: 20150226
  Transmission Date: 20150721
  Serious: Yes (Other)
  Sender: FDA-Public Use
  Company Number: DE-ROCHE-1543836

PATIENT
  Sex: Female
  Weight: 20.8 kg

DRUGS (2)
  1. PEGASYS [Suspect]
     Active Substance: PEGINTERFERON ALFA-2A
     Indication: HEPATITIS C
     Route: 058
     Dates: start: 20140821, end: 20150129
  2. REBETOL [Suspect]
     Active Substance: RIBAVIRIN
     Indication: HEPATITIS C
     Route: 048
     Dates: start: 20140821, end: 20150129

REACTIONS (7)
  - Pancytopenia [Recovering/Resolving]
  - Hyperthyroidism [Recovered/Resolved]
  - Headache [Recovered/Resolved]
  - Pain in extremity [Recovered/Resolved]
  - Urticaria [Recovered/Resolved]
  - Abdominal pain [Recovered/Resolved]
  - Aphthous stomatitis [Recovered/Resolved]
